FAERS Safety Report 9577145 (Version 1)
Quarter: 2013Q4

REPORT INFORMATION
  Report Type: Spontaneous
  Country: US (occurrence: US)
  Receive Date: 20131001
  Receipt Date: 20131001
  Transmission Date: 20140711
  Serious: No
  Sender: FDA-Public Use
  Company Number: US-AMGEN-USASP2013006741

PATIENT
  Age: 59 Year
  Sex: Male
  Weight: 70.3 kg

DRUGS (5)
  1. ENBREL [Suspect]
     Indication: RHEUMATOID ARTHRITIS
     Dosage: UNK UNK, QWK
     Route: 058
     Dates: start: 20100101, end: 20120101
  2. CRESTOR [Concomitant]
     Dosage: UNK
  3. IMURAN                             /00001501/ [Concomitant]
     Dosage: UNK
  4. LISINOPRIL [Concomitant]
     Dosage: UNK
  5. NOVOLOG [Concomitant]
     Dosage: 70/30, UNK

REACTIONS (1)
  - Therapeutic response decreased [Unknown]
